FAERS Safety Report 16413867 (Version 2)
Quarter: 2019Q2

REPORT INFORMATION
  Report Type: Spontaneous
  Country: US (occurrence: US)
  Receive Date: 20190611
  Receipt Date: 20190621
  Transmission Date: 20190711
  Serious: No
  Sender: FDA-Public Use
  Company Number: PHEH2019US023881

PATIENT
  Sex: Female

DRUGS (2)
  1. LENVATINIB [Suspect]
     Active Substance: LENVATINIB
     Indication: THYROID CANCER
     Dosage: 18 MG, QD
     Route: 048
     Dates: start: 201904
  2. AFINITOR [Suspect]
     Active Substance: EVEROLIMUS
     Indication: THYROID CANCER
     Dosage: UNK
     Route: 065

REACTIONS (5)
  - Rash [Unknown]
  - Off label use [Unknown]
  - Rash [Recovering/Resolving]
  - Malaise [Unknown]
  - Diarrhoea [Unknown]
